FAERS Safety Report 12736758 (Version 14)
Quarter: 2024Q4

REPORT INFORMATION
  Report Type: Report from Study
  Country: JP (occurrence: JP)
  Receive Date: 20160912
  Receipt Date: 20241224
  Transmission Date: 20250115
  Serious: Yes (Hospitalization, Other)
  Sender: BRISTOL-MYERS SQUIBB COMPANY
  Company Number: JP-BRISTOL-MYERS SQUIBB COMPANY-BMS-2016-032469

PATIENT
  Age: 55 Year
  Sex: Male
  Weight: 72 kg

DRUGS (2)
  1. NIVOLUMAB [Suspect]
     Active Substance: NIVOLUMAB
     Indication: Non-small cell lung cancer recurrent
     Dosage: 3MG/KG/DAY(2016/2/10,2/24,3/10,3/24,4/7)
     Route: 041
     Dates: start: 20160210, end: 20160407
  2. TAGRISSO [Suspect]
     Active Substance: OSIMERTINIB
     Indication: Product used for unknown indication
     Dosage: UNK
     Route: 048
     Dates: start: 201608

REACTIONS (4)
  - Fulminant type 1 diabetes mellitus [Not Recovered/Not Resolved]
  - Weight decreased [Unknown]
  - Platelet count decreased [Recovered/Resolved]
  - Hepatic function abnormal [Recovered/Resolved]

NARRATIVE: CASE EVENT DATE: 20160419
